FAERS Safety Report 8073740-3 (Version None)
Quarter: 2012Q1

REPORT INFORMATION
  Report Type: 
  Country: None (occurrence: None)
  Receive Date: 20120126
  Receipt Date: 20120120
  Transmission Date: 20120608
  Serious: Yes (Other)
  Sender: FDA-Public Use
  Company Number: JP-CELGENEUS-087-21660-11122336

PATIENT
  Sex: Female
  Weight: 54 kg

DRUGS (4)
  1. ABRAXANE [Suspect]
     Indication: BREAST CANCER METASTATIC
     Dosage: 397.8 MILLIGRAM
     Route: 041
     Dates: start: 20110118, end: 20110118
  2. SINSERON [Concomitant]
     Route: 048
     Dates: start: 20110118, end: 20110217
  3. MAGMITT [Concomitant]
     Route: 048
     Dates: start: 20110118
  4. POSTERISAN [Concomitant]
     Route: 061
     Dates: start: 20110118, end: 20110216

REACTIONS (2)
  - WHITE BLOOD CELL COUNT DECREASED [None]
  - NEUTROPHIL COUNT DECREASED [None]
